FAERS Safety Report 19752514 (Version 2)
Quarter: 2021Q3

REPORT INFORMATION
  Report Type: Report from Study
  Country: US (occurrence: US)
  Receive Date: 20210826
  Receipt Date: 20210907
  Transmission Date: 20211014
  Serious: Yes (Hospitalization)
  Sender: FDA-Public Use
  Company Number: US-TEVA-2021-US-1944743

PATIENT

DRUGS (1)
  1. PROSTAGLANDIN E1 [Suspect]
     Active Substance: ALPROSTADIL
     Indication: PATENT DUCTUS ARTERIOSUS
     Dosage: 0.01 UG/KG ONCE IN A MINUTE
     Route: 050

REACTIONS (1)
  - Necrotising colitis [Unknown]
